FAERS Safety Report 21102148 (Version 16)
Quarter: 2023Q1

REPORT INFORMATION
  Report Type: Report from Study
  Country: CN (occurrence: CN)
  Receive Date: 20220719
  Receipt Date: 20230310
  Transmission Date: 20230417
  Serious: Yes (Hospitalization, Other)
  Sender: FDA-Public Use
  Company Number: CN-FOSUNKITE-FOSUNKITE-20220062

PATIENT
  Age: 59 Year
  Sex: Male

DRUGS (13)
  1. AXICABTAGENE CILOLEUCEL [Suspect]
     Active Substance: AXICABTAGENE CILOLEUCEL
     Indication: Diffuse large B-cell lymphoma
     Dosage: 1.3X10^8 CELLS (NUMBER OF CAR-T CELLS)
     Route: 042
     Dates: start: 20220531, end: 20220531
  2. CYCLOPHOSPHAMIDE [Concomitant]
     Active Substance: CYCLOPHOSPHAMIDE
     Indication: Lymphodepletion
     Dosage: 0.92 G
     Route: 041
     Dates: start: 20220525, end: 20220525
  3. CYCLOPHOSPHAMIDE [Concomitant]
     Active Substance: CYCLOPHOSPHAMIDE
     Dosage: 0.8 G
     Route: 041
     Dates: start: 20220527, end: 20220527
  4. CYCLOPHOSPHAMIDE [Concomitant]
     Active Substance: CYCLOPHOSPHAMIDE
     Dosage: 1 G
     Route: 041
     Dates: start: 20220528, end: 20220528
  5. FLUDARABINE [Concomitant]
     Active Substance: FLUDARABINE PHOSPHATE
     Indication: Lymphodepletion
     Dosage: 55 MG
     Route: 041
     Dates: start: 20220525, end: 20220525
  6. FLUDARABINE [Concomitant]
     Active Substance: FLUDARABINE PHOSPHATE
     Dosage: 50 MG
     Route: 041
     Dates: start: 20220527, end: 20220528
  7. WHOLE BLOOD [Concomitant]
     Active Substance: WHOLE BLOOD
     Indication: Anaemia
     Dosage: TRANSFUSIONS
     Dates: start: 20220526
  8. GRANULOCYTE COLONY-STIMULATING FACTOR NOS [Concomitant]
     Active Substance: GRANULOCYTE COLONY-STIMULATING FACTOR NOS
     Indication: Neutrophil count
     Dosage: UNK
     Dates: start: 20220529, end: 20220529
  9. GRANULOCYTE COLONY-STIMULATING FACTOR NOS [Concomitant]
     Active Substance: GRANULOCYTE COLONY-STIMULATING FACTOR NOS
     Dosage: 300 UG IH ONCE
     Dates: start: 20220618, end: 20220618
  10. GRANULOCYTE COLONY-STIMULATING FACTOR NOS [Concomitant]
     Active Substance: GRANULOCYTE COLONY-STIMULATING FACTOR NOS
     Dosage: 300 UG IH ONCE
     Dates: start: 20220701, end: 20220701
  11. GRANULOCYTE COLONY-STIMULATING FACTOR NOS [Concomitant]
     Active Substance: GRANULOCYTE COLONY-STIMULATING FACTOR NOS
     Dosage: 300 UG IH ONCE
     Dates: start: 20220702, end: 20220702
  12. GRANULOCYTE COLONY-STIMULATING FACTOR NOS [Concomitant]
     Active Substance: GRANULOCYTE COLONY-STIMULATING FACTOR NOS
     Dosage: 2 VIALS
     Dates: start: 20220712
  13. IBRUTINIB [Concomitant]
     Active Substance: IBRUTINIB
     Indication: Non-Hodgkin^s lymphoma
     Dosage: 420 MG, QD
     Route: 048
     Dates: start: 20220503, end: 20220608

REACTIONS (17)
  - Full blood count decreased [Recovering/Resolving]
  - Hyperkalaemia [Recovered/Resolved]
  - Neutropenic infection [Recovered/Resolved]
  - Cytokine release syndrome [Recovered/Resolved]
  - Nausea [Recovered/Resolved]
  - Vomiting [Recovered/Resolved]
  - Tremor [Recovered/Resolved]
  - Neutrophil count decreased [Not Recovered/Not Resolved]
  - C-reactive protein increased [Recovered/Resolved]
  - Hypoproteinaemia [Recovered/Resolved]
  - Serum ferritin increased [Not Recovered/Not Resolved]
  - Anaemia [Not Recovered/Not Resolved]
  - White blood cell count decreased [Not Recovered/Not Resolved]
  - Lymphocyte count decreased [Not Recovered/Not Resolved]
  - Blood lactate dehydrogenase increased [Recovered/Resolved]
  - Platelet count decreased [Not Recovered/Not Resolved]
  - Diarrhoea [Recovered/Resolved]

NARRATIVE: CASE EVENT DATE: 20220531
